FAERS Safety Report 22646783 (Version 8)
Quarter: 2023Q4

REPORT INFORMATION
  Report Type: Spontaneous
  Country: CA (occurrence: CA)
  Receive Date: 20230627
  Receipt Date: 20231204
  Transmission Date: 20240109
  Serious: Yes (Death, Life-Threatening, Hospitalization, Disabling, Other)
  Sender: FDA-Public Use
  Company Number: CA-SAKK-2023SA177830AA

PATIENT
  Age: 80 Year
  Sex: Male
  Weight: 69 kg

DRUGS (222)
  1. LANSOPRAZOLE [Suspect]
     Active Substance: LANSOPRAZOLE
     Indication: Antacid therapy
     Dosage: 30 MG, QD
     Route: 048
  2. LANSOPRAZOLE [Suspect]
     Active Substance: LANSOPRAZOLE
     Indication: Intentional product misuse
     Dosage: UNK
  3. LANSOPRAZOLE [Suspect]
     Active Substance: LANSOPRAZOLE
     Indication: Off label use
  4. LANTHANUM CARBONATE [Suspect]
     Active Substance: LANTHANUM CARBONATE
     Indication: Hyperphosphataemia
     Dosage: DOSE DESCRIPTION : 500 UNK
     Route: 048
  5. LANTHANUM CARBONATE [Suspect]
     Active Substance: LANTHANUM CARBONATE
     Indication: Blood phosphorus increased
     Dosage: DOSE DESCRIPTION : UNK
  6. LANTHANUM CARBONATE [Suspect]
     Active Substance: LANTHANUM CARBONATE
     Indication: Off label use
     Dosage: DOSE DESCRIPTION : 1 EVERY 1 DAYS
  7. LANTHANUM CARBONATE [Suspect]
     Active Substance: LANTHANUM CARBONATE
     Dosage: DOSE DESCRIPTION : UNK
  8. LANTHANUM CARBONATE [Suspect]
     Active Substance: LANTHANUM CARBONATE
     Dosage: DOSE DESCRIPTION : UNK
     Route: 048
  9. LANTHANUM CARBONATE [Suspect]
     Active Substance: LANTHANUM CARBONATE
     Dosage: DOSE DESCRIPTION : 500 UNK
  10. LANTHANUM CARBONATE [Suspect]
     Active Substance: LANTHANUM CARBONATE
     Dosage: DOSE DESCRIPTION : 500 MG
  11. LANTHANUM CARBONATE [Suspect]
     Active Substance: LANTHANUM CARBONATE
     Dosage: DOSE DESCRIPTION : 500 MG, PRN
     Route: 048
  12. LANTHANUM CARBONATE [Suspect]
     Active Substance: LANTHANUM CARBONATE
     Dosage: DOSE DESCRIPTION : 1 EVERY 1 DAYS
     Route: 048
  13. LANTHANUM CARBONATE [Suspect]
     Active Substance: LANTHANUM CARBONATE
     Dosage: DOSE DESCRIPTION : 550 MG, 1 EVERY 1 DAYS
  14. LANTHANUM CARBONATE [Suspect]
     Active Substance: LANTHANUM CARBONATE
     Dosage: DOSE DESCRIPTION : 1 EVERY 1 DAYS
  15. ACETAMINOPHEN [Suspect]
     Active Substance: ACETAMINOPHEN
     Indication: Product used for unknown indication
     Dosage: DOSE DESCRIPTION : 650 MG, QD
     Route: 048
  16. ACETAMINOPHEN [Suspect]
     Active Substance: ACETAMINOPHEN
     Indication: Off label use
     Dosage: DOSE DESCRIPTION : 5 MG, QD
     Route: 042
  17. ACETAMINOPHEN [Suspect]
     Active Substance: ACETAMINOPHEN
     Indication: Analgesic therapy
  18. ACETAMINOPHEN [Suspect]
     Active Substance: ACETAMINOPHEN
     Indication: Intentional product misuse
  19. ALLOPURINOL [Suspect]
     Active Substance: ALLOPURINOL
     Indication: Blood uric acid increased
     Dosage: DOSE DESCRIPTION : 100 MG
     Route: 048
  20. ALLOPURINOL [Suspect]
     Active Substance: ALLOPURINOL
     Indication: Product used for unknown indication
     Dosage: DOSE DESCRIPTION : 100 MG, QD
  21. ALLOPURINOL [Suspect]
     Active Substance: ALLOPURINOL
     Indication: Off label use
     Dosage: DOSE DESCRIPTION : 1 DF, QD
     Route: 048
  22. ALLOPURINOL [Suspect]
     Active Substance: ALLOPURINOL
     Indication: Intentional product misuse
  23. AMIODARONE HYDROCHLORIDE [Suspect]
     Active Substance: AMIODARONE HYDROCHLORIDE
     Indication: Ventricular fibrillation
     Dosage: DOSE DESCRIPTION : 150 MG, QD
     Route: 042
  24. AMIODARONE HYDROCHLORIDE [Suspect]
     Active Substance: AMIODARONE HYDROCHLORIDE
     Indication: Drug therapy
     Dosage: DOSE DESCRIPTION : UNK
     Route: 042
  25. AMIODARONE HYDROCHLORIDE [Suspect]
     Active Substance: AMIODARONE HYDROCHLORIDE
     Indication: Intentional product misuse
     Dosage: DOSE DESCRIPTION : UNK
     Route: 042
  26. AMIODARONE HYDROCHLORIDE [Suspect]
     Active Substance: AMIODARONE HYDROCHLORIDE
     Dosage: DOSE DESCRIPTION : UNK
     Route: 042
  27. AMIODARONE HYDROCHLORIDE [Suspect]
     Active Substance: AMIODARONE HYDROCHLORIDE
     Dosage: DOSE DESCRIPTION : UNK
     Route: 042
  28. AMIODARONE HYDROCHLORIDE [Suspect]
     Active Substance: AMIODARONE HYDROCHLORIDE
     Dosage: DOSE DESCRIPTION : UNK
     Route: 042
  29. BETAMETHASONE [Suspect]
     Active Substance: BETAMETHASONE\BETAMETHASONE DIPROPIONATE
     Indication: Swelling
     Dosage: DOSE DESCRIPTION : UNK, PRN
     Route: 061
  30. BETAMETHASONE [Suspect]
     Active Substance: BETAMETHASONE\BETAMETHASONE DIPROPIONATE
     Dosage: DOSE DESCRIPTION : UNK
  31. BETAMETHASONE [Suspect]
     Active Substance: BETAMETHASONE\BETAMETHASONE DIPROPIONATE
     Dosage: DOSE DESCRIPTION : UNK
  32. CEFTRIAXONE SODIUM [Suspect]
     Active Substance: CEFTRIAXONE SODIUM
     Indication: Bacterial infection
     Dosage: DOSE DESCRIPTION : 2 G, 1 EVERY 1 DAYS
     Route: 042
  33. CEFTRIAXONE SODIUM [Suspect]
     Active Substance: CEFTRIAXONE SODIUM
     Dosage: DOSE DESCRIPTION : UNK
  34. DOBUTAMINE [Suspect]
     Active Substance: DOBUTAMINE HYDROCHLORIDE
     Indication: Cardiogenic shock
     Dosage: DOSE DESCRIPTION : UNK
     Route: 042
  35. DOBUTAMINE [Suspect]
     Active Substance: DOBUTAMINE HYDROCHLORIDE
     Dosage: DOSE DESCRIPTION : UNK
  36. DOBUTAMINE [Suspect]
     Active Substance: DOBUTAMINE HYDROCHLORIDE
     Dosage: DOSE DESCRIPTION : UNK
     Route: 042
  37. DOBUTAMINE [Suspect]
     Active Substance: DOBUTAMINE HYDROCHLORIDE
     Dosage: DOSE DESCRIPTION : UNK
     Route: 042
  38. GABAPENTIN [Suspect]
     Active Substance: GABAPENTIN
     Indication: Neuralgia
     Dosage: DOSE DESCRIPTION : 100 MG, QD
     Route: 048
  39. GABAPENTIN [Suspect]
     Active Substance: GABAPENTIN
     Dosage: DOSE DESCRIPTION : UNK
     Route: 048
  40. GABAPENTIN [Suspect]
     Active Substance: GABAPENTIN
     Dosage: DOSE DESCRIPTION : UNK
     Route: 048
  41. GABAPENTIN [Suspect]
     Active Substance: GABAPENTIN
     Dosage: DOSE DESCRIPTION : UNK
     Route: 048
  42. HYDROMORPHONE HYDROCHLORIDE [Suspect]
     Active Substance: HYDROMORPHONE HYDROCHLORIDE
     Indication: Analgesic therapy
     Dosage: DOSE DESCRIPTION : 1 MG, Q6H
     Route: 058
  43. HYDROMORPHONE HYDROCHLORIDE [Suspect]
     Active Substance: HYDROMORPHONE HYDROCHLORIDE
     Dosage: DOSE DESCRIPTION : UNK UNK, QD
  44. HYDROMORPHONE HYDROCHLORIDE [Suspect]
     Active Substance: HYDROMORPHONE HYDROCHLORIDE
     Dosage: DOSE DESCRIPTION : 4 EVERY 1 DAYS
  45. INSULIN ASPART [Suspect]
     Active Substance: INSULIN ASPART
     Indication: Diabetes mellitus
     Dosage: DOSE DESCRIPTION : UNK
     Route: 058
  46. INSULIN ASPART [Suspect]
     Active Substance: INSULIN ASPART
     Dosage: DOSE DESCRIPTION : UNK
  47. INSULIN ASPART [Suspect]
     Active Substance: INSULIN ASPART
     Dosage: DOSE DESCRIPTION : UNK
     Route: 058
  48. INSULIN ASPART [Suspect]
     Active Substance: INSULIN ASPART
     Dosage: DOSE DESCRIPTION : UNK
     Route: 065
  49. XYLOMETAZOLINE HYDROCHLORIDE [Suspect]
     Active Substance: XYLOMETAZOLINE HYDROCHLORIDE
     Indication: Dyspnoea
     Dosage: UNK
     Route: 055
  50. POLYETHYLENE GLYCOL 3350 [Suspect]
     Active Substance: POLYETHYLENE GLYCOL 3350
     Indication: Constipation
     Dosage: UNK, QD
     Route: 048
  51. POLYETHYLENE GLYCOL 3350 [Suspect]
     Active Substance: POLYETHYLENE GLYCOL 3350
     Dosage: UNK
     Route: 048
  52. POLYETHYLENE GLYCOL 3350 [Suspect]
     Active Substance: POLYETHYLENE GLYCOL 3350
     Dosage: UNK
     Route: 048
  53. POLYETHYLENE GLYCOL 3350 [Suspect]
     Active Substance: POLYETHYLENE GLYCOL 3350
     Dosage: UNK
     Route: 048
  54. MELATONIN [Suspect]
     Active Substance: MELATONIN
     Indication: Sleep disorder therapy
     Dosage: DOSE DESCRIPTION : 3 MG, QD
     Route: 048
  55. MELATONIN [Suspect]
     Active Substance: MELATONIN
     Dosage: UNK
  56. MELATONIN [Suspect]
     Active Substance: MELATONIN
     Dosage: DOSE DESCRIPTION : UNK
  57. METRONIDAZOLE [Suspect]
     Active Substance: METRONIDAZOLE
     Indication: Off label use
     Dosage: DOSE DESCRIPTION : 500 MG, TID
     Route: 048
  58. METRONIDAZOLE [Suspect]
     Active Substance: METRONIDAZOLE
     Indication: Intentional product misuse
     Dosage: DOSE DESCRIPTION : 500 UNK
     Route: 048
  59. METRONIDAZOLE [Suspect]
     Active Substance: METRONIDAZOLE
     Indication: Bacterial infection
     Dosage: DOSE DESCRIPTION : 1MG
  60. METRONIDAZOLE [Suspect]
     Active Substance: METRONIDAZOLE
     Indication: Intentional product misuse
     Dosage: DOSE DESCRIPTION : UNK
     Route: 048
  61. METRONIDAZOLE [Suspect]
     Active Substance: METRONIDAZOLE
     Dosage: DOSE DESCRIPTION : 1500 MG
     Route: 048
  62. METRONIDAZOLE [Suspect]
     Active Substance: METRONIDAZOLE
     Dosage: DOSE DESCRIPTION : 1500 UNK
     Route: 048
  63. METRONIDAZOLE [Suspect]
     Active Substance: METRONIDAZOLE
     Dosage: DOSE DESCRIPTION : 1500 UNK
     Route: 048
  64. METRONIDAZOLE [Suspect]
     Active Substance: METRONIDAZOLE
     Dosage: DOSE DESCRIPTION : 1500 UNK
     Route: 048
  65. METRONIDAZOLE [Suspect]
     Active Substance: METRONIDAZOLE
     Dosage: DOSE DESCRIPTION : 1500 UNK
     Route: 048
  66. METRONIDAZOLE [Suspect]
     Active Substance: METRONIDAZOLE
     Dosage: DOSE DESCRIPTION : 1 EVERY 1 DAYS
     Route: 048
  67. METRONIDAZOLE [Suspect]
     Active Substance: METRONIDAZOLE
     Dosage: DOSE DESCRIPTION : 500 UG, Q8H
     Route: 048
  68. METRONIDAZOLE [Suspect]
     Active Substance: METRONIDAZOLE
     Dosage: DOSE DESCRIPTION : 1500 UG, QD
     Route: 048
  69. METRONIDAZOLE [Suspect]
     Active Substance: METRONIDAZOLE
     Dosage: DOSE DESCRIPTION : 4500 MG, QD
     Route: 048
  70. METRONIDAZOLE [Suspect]
     Active Substance: METRONIDAZOLE
     Dosage: DOSE DESCRIPTION : UNK, Q3H
     Route: 048
  71. METRONIDAZOLE [Suspect]
     Active Substance: METRONIDAZOLE
     Dosage: DOSE DESCRIPTION : 500 MICROGRAM, Q8HR
     Route: 048
  72. METRONIDAZOLE [Suspect]
     Active Substance: METRONIDAZOLE
     Dosage: 500 MICROGRAM, Q8HR
     Route: 048
  73. METRONIDAZOLE [Suspect]
     Active Substance: METRONIDAZOLE
     Dosage: 500 MILLIGRAM, Q8HR
     Route: 048
  74. METRONIDAZOLE [Suspect]
     Active Substance: METRONIDAZOLE
     Dosage: 1500 MG, QD
     Route: 048
  75. METRONIDAZOLE [Suspect]
     Active Substance: METRONIDAZOLE
     Dosage: 500 MG, QD
     Route: 048
  76. METRONIDAZOLE [Suspect]
     Active Substance: METRONIDAZOLE
     Dosage: 500 MG, TID
     Route: 048
  77. METRONIDAZOLE [Suspect]
     Active Substance: METRONIDAZOLE
     Dosage: 1500 MG, TID
     Route: 048
  78. METRONIDAZOLE [Suspect]
     Active Substance: METRONIDAZOLE
     Dosage: 500 UG, QD
     Route: 048
  79. METRONIDAZOLE [Suspect]
     Active Substance: METRONIDAZOLE
     Dosage: 500 MG
     Route: 048
  80. METRONIDAZOLE [Suspect]
     Active Substance: METRONIDAZOLE
     Dosage: TID
  81. METRONIDAZOLE [Suspect]
     Active Substance: METRONIDAZOLE
     Dosage: Q3H
     Route: 048
  82. NOREPINEPHRINE [Suspect]
     Active Substance: NOREPINEPHRINE
     Indication: Stress
     Route: 042
  83. NOREPINEPHRINE [Suspect]
     Active Substance: NOREPINEPHRINE
     Dosage: DOSE DESCRIPTION : 1MG
     Route: 048
  84. NOREPINEPHRINE [Suspect]
     Active Substance: NOREPINEPHRINE
     Dosage: DOSE DESCRIPTION : UNK
     Route: 048
  85. NOREPINEPHRINE [Suspect]
     Active Substance: NOREPINEPHRINE
     Dosage: DOSE DESCRIPTION : UNK
     Route: 042
  86. NOREPINEPHRINE [Suspect]
     Active Substance: NOREPINEPHRINE
     Dosage: DOSE DESCRIPTION : UNK
     Route: 042
  87. ONDANSETRON [Suspect]
     Active Substance: ONDANSETRON
     Indication: Vomiting
     Dosage: DOSE DESCRIPTION : 40 MG, 1 EVERY 1 DAYS
     Route: 042
  88. ONDANSETRON [Suspect]
     Active Substance: ONDANSETRON
     Indication: Nausea
     Dosage: DOSE DESCRIPTION : 12 UNK
     Route: 042
  89. ONDANSETRON [Suspect]
     Active Substance: ONDANSETRON
     Indication: Off label use
     Dosage: DOSE DESCRIPTION : UNK
     Route: 065
  90. ONDANSETRON [Suspect]
     Active Substance: ONDANSETRON
     Dosage: DOSE DESCRIPTION : 41.14 MG, 1 EVERY 8 HOURS
  91. ONDANSETRON [Suspect]
     Active Substance: ONDANSETRON
     Dosage: DOSE DESCRIPTION : 12 MG, 1 EVERY 1 DAYS
  92. ONDANSETRON [Suspect]
     Active Substance: ONDANSETRON
     Dosage: DOSE DESCRIPTION : 12.0 MG, 1 EVERY 8 HOURS
  93. ONDANSETRON [Suspect]
     Active Substance: ONDANSETRON
     Dosage: DOSE DESCRIPTION : 8 MG, 1 EVERY 1 DAYS
  94. ONDANSETRON [Suspect]
     Active Substance: ONDANSETRON
     Dosage: DOSE DESCRIPTION : 4 MG, QD
     Route: 042
  95. ONDANSETRON [Suspect]
     Active Substance: ONDANSETRON
     Dosage: DOSE DESCRIPTION : 40 MG, TID
     Route: 042
  96. ONDANSETRON [Suspect]
     Active Substance: ONDANSETRON
     Dosage: DOSE DESCRIPTION : 4 MG, 1 EVERY 8 HOURS
  97. ONDANSETRON [Suspect]
     Active Substance: ONDANSETRON
     Dosage: DOSE DESCRIPTION : UNK
  98. ONDANSETRON [Suspect]
     Active Substance: ONDANSETRON
     Dosage: DOSE DESCRIPTION : 41.14 MG,1 EVERY 8 HOURS
  99. ONDANSETRON [Suspect]
     Active Substance: ONDANSETRON
     Dosage: DOSE DESCRIPTION : 4 MG
  100. ONDANSETRON [Suspect]
     Active Substance: ONDANSETRON
     Dosage: DOSE DESCRIPTION : 24.0 MG, 1 EVERY 8 HOURS
  101. ONDANSETRON [Suspect]
     Active Substance: ONDANSETRON
     Dosage: DOSE DESCRIPTION : 12 MG, 1 EVERY 8 HOURS
  102. ONDANSETRON [Suspect]
     Active Substance: ONDANSETRON
     Dosage: DOSE DESCRIPTION : 60 MG, 1 EVERY 1 DAYS
  103. ONDANSETRON [Suspect]
     Active Substance: ONDANSETRON
     Dosage: DOSE DESCRIPTION : 14.14 MG, 1 EVERY 8 HOURS
  104. ONDANSETRON [Suspect]
     Active Substance: ONDANSETRON
     Dosage: DOSE DESCRIPTION : 1 DF
  105. ONDANSETRON [Suspect]
     Active Substance: ONDANSETRON
     Dosage: DOSE DESCRIPTION : 1 DF, 1 EVERY 6 HOURS
  106. ONDANSETRON [Suspect]
     Active Substance: ONDANSETRON
     Dosage: DOSE DESCRIPTION : 1 DF, 1 EVERY 8 HOURS
  107. ONDANSETRON [Suspect]
     Active Substance: ONDANSETRON
     Dosage: DOSE DESCRIPTION : 1 DF, 1 EVERY 1 DAYS
  108. ONDANSETRON [Suspect]
     Active Substance: ONDANSETRON
     Dosage: DOSE DESCRIPTION : 1 DF, 1 EVERY 1 DAYS
  109. ONDANSETRON [Suspect]
     Active Substance: ONDANSETRON
     Dosage: DOSE DESCRIPTION : 12 MG, TID
     Route: 042
  110. ONDANSETRON [Suspect]
     Active Substance: ONDANSETRON
     Dosage: DOSE DESCRIPTION : UNK
  111. ONDANSETRON [Suspect]
     Active Substance: ONDANSETRON
     Dosage: DOSE DESCRIPTION : 24 MG, 1 EVERY 8 HOURS
  112. ONDANSETRON [Suspect]
     Active Substance: ONDANSETRON
     Dosage: DOSE DESCRIPTION : 36 MG, Q8H
     Route: 042
  113. ONDANSETRON [Suspect]
     Active Substance: ONDANSETRON
     Dosage: DOSE DESCRIPTION : 4.0 MG, 1 EVERY 8 HOURS
     Route: 042
  114. ONDANSETRON [Suspect]
     Active Substance: ONDANSETRON
     Dosage: DOSE DESCRIPTION : 108 UNK
     Route: 042
  115. ONDANSETRON [Suspect]
     Active Substance: ONDANSETRON
     Dosage: DOSE DESCRIPTION : 8 MG, Q8H
     Route: 042
  116. ONDANSETRON [Suspect]
     Active Substance: ONDANSETRON
     Dosage: DOSE DESCRIPTION : 41.14 MG, Q8H
     Route: 042
  117. ONDANSETRON [Suspect]
     Active Substance: ONDANSETRON
     Dosage: DOSE DESCRIPTION : 24 MG, Q8H
     Route: 042
  118. ONDANSETRON [Suspect]
     Active Substance: ONDANSETRON
     Dosage: DOSE DESCRIPTION : 4 MG, TID
     Route: 042
  119. ONDANSETRON [Suspect]
     Active Substance: ONDANSETRON
     Dosage: DOSE DESCRIPTION : 12 MG, QD
     Route: 042
  120. ONDANSETRON [Suspect]
     Active Substance: ONDANSETRON
     Dosage: DOSE DESCRIPTION : 12 MG
     Route: 042
  121. ONDANSETRON [Suspect]
     Active Substance: ONDANSETRON
     Dosage: DOSE DESCRIPTION : 41.14 MG
     Route: 042
  122. ONDANSETRON [Suspect]
     Active Substance: ONDANSETRON
     Dosage: DOSE DESCRIPTION : 41.14 MG
     Route: 042
  123. ONDANSETRON [Suspect]
     Active Substance: ONDANSETRON
     Dosage: DOSE DESCRIPTION : 1 DF, Q8H
     Route: 042
  124. ONDANSETRON [Suspect]
     Active Substance: ONDANSETRON
     Dosage: DOSE DESCRIPTION : 4 MG, Q8H
     Route: 042
  125. ONDANSETRON [Suspect]
     Active Substance: ONDANSETRON
     Dosage: DOSE DESCRIPTION : 1 DF, QD
     Route: 042
  126. ONDANSETRON [Suspect]
     Active Substance: ONDANSETRON
     Dosage: DOSE DESCRIPTION : 12 MG
     Route: 042
  127. ONDANSETRON [Suspect]
     Active Substance: ONDANSETRON
     Dosage: DOSE DESCRIPTION : 1 DF, Q6H
     Route: 042
  128. ONDANSETRON [Suspect]
     Active Substance: ONDANSETRON
     Dosage: DOSE DESCRIPTION : 12 MG, QD
     Route: 042
  129. ONDANSETRON [Suspect]
     Active Substance: ONDANSETRON
     Dosage: DOSE DESCRIPTION : 1 DF
     Route: 042
  130. ONDANSETRON [Suspect]
     Active Substance: ONDANSETRON
     Dosage: DOSE DESCRIPTION : 40 MG, QD
     Route: 042
  131. ONDANSETRON [Suspect]
     Active Substance: ONDANSETRON
     Dosage: DOSE DESCRIPTION : 36 MG, QD
     Route: 042
  132. ONDANSETRON [Suspect]
     Active Substance: ONDANSETRON
     Dosage: DOSE DESCRIPTION : 36 MG, Q8H
     Route: 042
  133. PYRIDOXINE HYDROCHLORIDE [Suspect]
     Active Substance: PYRIDOXINE HYDROCHLORIDE
     Indication: Vitamin supplementation
     Dosage: DOSE DESCRIPTION : UNK
     Route: 048
  134. PYRIDOXINE HYDROCHLORIDE [Suspect]
     Active Substance: PYRIDOXINE HYDROCHLORIDE
     Dosage: DOSE DESCRIPTION : UNK
     Route: 048
  135. PYRIDOXINE HYDROCHLORIDE [Suspect]
     Active Substance: PYRIDOXINE HYDROCHLORIDE
     Dosage: DOSE DESCRIPTION : UNK
     Route: 048
  136. PYRIDOXINE HYDROCHLORIDE [Suspect]
     Active Substance: PYRIDOXINE HYDROCHLORIDE
     Dosage: DOSE DESCRIPTION : UNK
  137. ALBUTEROL SULFATE [Suspect]
     Active Substance: ALBUTEROL SULFATE
     Indication: Chronic obstructive pulmonary disease
     Dosage: DOSE DESCRIPTION : UNK
     Route: 055
  138. ALBUTEROL SULFATE [Suspect]
     Active Substance: ALBUTEROL SULFATE
     Indication: Off label use
     Dosage: DOSE DESCRIPTION : UNK, QD
     Route: 055
  139. ALBUTEROL SULFATE [Suspect]
     Active Substance: ALBUTEROL SULFATE
     Indication: Intentional product misuse
     Dosage: DOSE DESCRIPTION : UNK
  140. ALBUTEROL SULFATE [Suspect]
     Active Substance: ALBUTEROL SULFATE
     Dosage: DOSE DESCRIPTION : UNK
  141. SIMVASTATIN [Suspect]
     Active Substance: SIMVASTATIN
     Indication: Blood cholesterol increased
     Dosage: DOSE DESCRIPTION : 40.0 MG, 1 EVERY 1 DAYS
     Route: 048
  142. SIMVASTATIN [Suspect]
     Active Substance: SIMVASTATIN
     Indication: Vitamin supplementation
     Dosage: DOSE DESCRIPTION : UNK
     Route: 048
  143. SIMVASTATIN [Suspect]
     Active Substance: SIMVASTATIN
     Dosage: DOSE DESCRIPTION : 40 MG, QD
     Route: 048
  144. SIMVASTATIN [Suspect]
     Active Substance: SIMVASTATIN
     Dosage: DOSE DESCRIPTION : 40.0 MG, 1 EVERY 1 DAYS
     Route: 048
  145. SIMVASTATIN [Suspect]
     Active Substance: SIMVASTATIN
     Dosage: DOSE DESCRIPTION : UNK
     Route: 048
  146. ATROVENT [Suspect]
     Active Substance: IPRATROPIUM BROMIDE
     Indication: Sleep disorder therapy
     Dosage: UNK UNK, QID
     Route: 048
  147. ATROVENT [Suspect]
     Active Substance: IPRATROPIUM BROMIDE
     Indication: Dyspnoea
     Dosage: DOSE DESCRIPTION : UNK
     Route: 048
  148. ATROVENT [Suspect]
     Active Substance: IPRATROPIUM BROMIDE
     Dosage: DOSE DESCRIPTION : UNK
     Route: 048
  149. ATROVENT [Suspect]
     Active Substance: IPRATROPIUM BROMIDE
     Dosage: DOSE DESCRIPTION : UNK
  150. DISTIGMINE BROMIDE [Suspect]
     Active Substance: DISTIGMINE BROMIDE
     Indication: Dyspnoea
     Dosage: DOSE DESCRIPTION : 1 IU, QD
     Route: 048
  151. DISTIGMINE BROMIDE [Suspect]
     Active Substance: DISTIGMINE BROMIDE
     Dosage: DOSE DESCRIPTION : UNK
  152. DISTIGMINE BROMIDE [Suspect]
     Active Substance: DISTIGMINE BROMIDE
     Dosage: DOSE DESCRIPTION : UNK
  153. DISTIGMINE BROMIDE [Suspect]
     Active Substance: DISTIGMINE BROMIDE
     Dosage: DOSE DESCRIPTION : 1 IU, QD
     Route: 048
  154. DISTIGMINE BROMIDE [Suspect]
     Active Substance: DISTIGMINE BROMIDE
     Dosage: DOSE DESCRIPTION : 1 IU, QD
     Route: 048
  155. SODIUM FERRIC GLUCONATE COMPLEX [Suspect]
     Active Substance: SODIUM FERRIC GLUCONATE COMPLEX
     Indication: Iron deficiency
     Dosage: DOSE DESCRIPTION : 125 MG, QM
     Route: 042
  156. SODIUM FERRIC GLUCONATE COMPLEX [Suspect]
     Active Substance: SODIUM FERRIC GLUCONATE COMPLEX
     Route: 042
  157. SODIUM FERRIC GLUCONATE COMPLEX [Suspect]
     Active Substance: SODIUM FERRIC GLUCONATE COMPLEX
     Dosage: DOSE DESCRIPTION : UNK
     Route: 042
  158. SODIUM FERRIC GLUCONATE COMPLEX [Suspect]
     Active Substance: SODIUM FERRIC GLUCONATE COMPLEX
     Dosage: DOSE DESCRIPTION : UNK
     Route: 042
  159. WARFARIN SODIUM [Suspect]
     Active Substance: WARFARIN SODIUM
     Indication: Thrombosis
     Dosage: DOSE DESCRIPTION : 2 MG, QD
     Route: 048
  160. WARFARIN SODIUM [Suspect]
     Active Substance: WARFARIN SODIUM
     Dosage: DOSE DESCRIPTION : UNK
  161. WARFARIN SODIUM [Suspect]
     Active Substance: WARFARIN SODIUM
     Dosage: DOSE DESCRIPTION : UNK
  162. SODIUM PICOSULFATE [Suspect]
     Active Substance: SODIUM PICOSULFATE
     Indication: Constipation
     Dosage: DOSE DESCRIPTION : 10 MG, PRN
     Route: 054
  163. SODIUM PICOSULFATE [Suspect]
     Active Substance: SODIUM PICOSULFATE
  164. PREVACID [Suspect]
     Active Substance: LANSOPRAZOLE
     Indication: Antacid therapy
     Dosage: DOSE DESCRIPTION : 30 MG, QD
     Route: 048
  165. PREVACID [Suspect]
     Active Substance: LANSOPRAZOLE
     Dosage: DOSE DESCRIPTION : UNK UNK, QID
     Route: 055
  166. PREVACID [Suspect]
     Active Substance: LANSOPRAZOLE
     Dosage: DOSE DESCRIPTION : UNK
     Route: 054
  167. PREVACID [Suspect]
     Active Substance: LANSOPRAZOLE
     Dosage: DOSE DESCRIPTION : 30 MILLIGRAM
  168. PREVACID [Suspect]
     Active Substance: LANSOPRAZOLE
     Dosage: UNK
     Route: 048
  169. PREVACID [Suspect]
     Active Substance: LANSOPRAZOLE
     Dosage: 30 MG
  170. PREVACID [Suspect]
     Active Substance: LANSOPRAZOLE
     Dosage: UNK
     Route: 048
  171. PREVACID [Suspect]
     Active Substance: LANSOPRAZOLE
     Dosage: 30 MG
  172. PREVACID [Suspect]
     Active Substance: LANSOPRAZOLE
     Dosage: DOSE DESCRIPTION : UNK
     Route: 042
  173. PREVACID [Suspect]
     Active Substance: LANSOPRAZOLE
     Dosage: 30 MG, QD
  174. PREVACID [Suspect]
     Active Substance: LANSOPRAZOLE
     Dosage: 30 MG
  175. PREVACID [Suspect]
     Active Substance: LANSOPRAZOLE
     Dosage: DOSE DESCRIPTION : UNK
     Route: 048
  176. PREVACID [Suspect]
     Active Substance: LANSOPRAZOLE
     Dosage: 30 MG, QD
  177. IPRATROPIUM BROMIDE [Suspect]
     Active Substance: IPRATROPIUM BROMIDE\IPRATROPIUM BROMIDE ANHYDROUS
     Indication: Dyspnoea
     Dosage: DOSE DESCRIPTION : UNK UNK, QID
     Route: 055
  178. IPRATROPIUM BROMIDE [Suspect]
     Active Substance: IPRATROPIUM BROMIDE\IPRATROPIUM BROMIDE ANHYDROUS
     Indication: Sleep disorder therapy
     Dosage: DOSE DESCRIPTION : UNK
     Route: 055
  179. IPRATROPIUM BROMIDE [Suspect]
     Active Substance: IPRATROPIUM BROMIDE\IPRATROPIUM BROMIDE ANHYDROUS
     Indication: Off label use
     Dosage: DOSE DESCRIPTION : UNK
  180. IPRATROPIUM BROMIDE [Suspect]
     Active Substance: IPRATROPIUM BROMIDE\IPRATROPIUM BROMIDE ANHYDROUS
     Indication: Intentional product misuse
     Dosage: DOSE DESCRIPTION : UNK
  181. FLUTICASONE FUROATE [Suspect]
     Active Substance: FLUTICASONE FUROATE
     Indication: Product used for unknown indication
     Dosage: DOSE DESCRIPTION : UNK
  182. CALCIUM GLUCONATE [Suspect]
     Active Substance: CALCIUM GLUCONATE
     Dosage: DOSE DESCRIPTION : UNK
  183. ASCORBIC ACID [Suspect]
     Active Substance: ASCORBIC ACID
     Dosage: DOSE DESCRIPTION : UNK
  184. RIBOFLAVIN [Suspect]
     Active Substance: RIBOFLAVIN
     Dosage: DOSE DESCRIPTION : UNK
  185. AMLODIPINE [Suspect]
     Active Substance: AMLODIPINE BESYLATE
     Dosage: UNK
  186. ALOE VERA LEAF [Suspect]
     Active Substance: ALOE VERA LEAF
     Indication: Constipation
     Dosage: DOSE DESCRIPTION : UNK
     Route: 065
  187. ALUMINUM HYDROXIDE\MAGNESIUM HYDROXIDE [Suspect]
     Active Substance: ALUMINUM HYDROXIDE\MAGNESIUM HYDROXIDE
     Indication: Constipation
     Dosage: UNK
     Route: 054
  188. ALUMINUM HYDROXIDE\MAGNESIUM HYDROXIDE [Suspect]
     Active Substance: ALUMINUM HYDROXIDE\MAGNESIUM HYDROXIDE
     Dosage: DOSE DESCRIPTION : 133 MG
     Route: 054
  189. ALUMINUM HYDROXIDE\MAGNESIUM HYDROXIDE [Suspect]
     Active Substance: ALUMINUM HYDROXIDE\MAGNESIUM HYDROXIDE
     Dosage: DOSE DESCRIPTION : 133 MILLIGRAM
  190. ALUMINUM HYDROXIDE\MAGNESIUM HYDROXIDE [Suspect]
     Active Substance: ALUMINUM HYDROXIDE\MAGNESIUM HYDROXIDE
     Dosage: DOSE DESCRIPTION : 133 MILLILITER
     Route: 054
  191. BISMUTH SUBSALICYLATE [Suspect]
     Active Substance: BISMUTH SUBSALICYLATE
     Indication: Constipation
     Dosage: DOSE DESCRIPTION : UNK
  192. BISMUTH SUBSALICYLATE [Suspect]
     Active Substance: BISMUTH SUBSALICYLATE
     Dosage: DOSE DESCRIPTION : 133.0 ML
  193. DULCOLAX (BISACODYL) [Suspect]
     Active Substance: BISACODYL
     Indication: Constipation
     Dosage: DOSE DESCRIPTION : 10.0 MG, QD
     Route: 054
  194. DULCOLAX (BISACODYL) [Suspect]
     Active Substance: BISACODYL
     Dosage: DOSE DESCRIPTION : 10.0 MG, QD
     Route: 054
  195. UNSPECIFIED INGREDIENT [Suspect]
     Active Substance: UNSPECIFIED INGREDIENT
     Indication: Anticoagulant therapy
     Route: 042
  196. LIDOCAINE HYDROCHLORIDE [Suspect]
     Active Substance: DEXTROSE MONOHYDRATE\EPINEPHRINE\EPINEPHRINE BITARTRATE\LIDOCAINE\LIDOCAINE HYDROCHLORIDE\LIDOCAINE
     Indication: Ventricular fibrillation
  197. LIDOCAINE HYDROCHLORIDE [Suspect]
     Active Substance: DEXTROSE MONOHYDRATE\EPINEPHRINE\EPINEPHRINE BITARTRATE\LIDOCAINE\LIDOCAINE HYDROCHLORIDE\LIDOCAINE
     Indication: Constipation
     Dosage: DOSE DESCRIPTION : 133.0 ML
  198. MAGNESIUM CARBONATE [Suspect]
     Active Substance: MAGNESIUM CARBONATE
     Indication: Product used for unknown indication
     Dosage: DOSE DESCRIPTION : UNK
  199. HERBALS [Suspect]
     Active Substance: HERBALS
     Indication: Nutritional supplementation
  200. HERBALS [Suspect]
     Active Substance: HERBALS
     Dosage: UNK
     Route: 042
  201. VITAMIN A PALMITATE [Suspect]
     Active Substance: VITAMIN A PALMITATE
     Indication: Constipation
     Dosage: DOSE DESCRIPTION : 17.0 G, 1 EVERY 1 DAYS
  202. SODIUM BICARBONATE [Suspect]
     Active Substance: SODIUM BICARBONATE
     Indication: Nutritional supplementation
     Dosage: DOSE DESCRIPTION : UNK
  203. SODIUM BICARBONATE [Suspect]
     Active Substance: SODIUM BICARBONATE
     Dosage: DOSE DESCRIPTION : 12.5 G
  204. THEOPHYLLINE [Suspect]
     Active Substance: THEOPHYLLINE
     Indication: Product used for unknown indication
  205. THEOPHYLLINE [Suspect]
     Active Substance: THEOPHYLLINE
     Indication: Product used for unknown indication
     Dosage: DOSE DESCRIPTION : UNK
  206. CALCIUM CARBONATE [Suspect]
     Active Substance: CALCIUM CARBONATE
     Indication: Product used for unknown indication
     Dosage: DOSE DESCRIPTION : UNK
  207. CALCIUM CARBONATE [Suspect]
     Active Substance: CALCIUM CARBONATE
     Dosage: DOSE DESCRIPTION : UNK
  208. MAALOX ANTACID [Suspect]
     Active Substance: ALUMINUM HYDROXIDE\DIMETHICONE\MAGNESIUM HYDROXIDE
     Indication: Constipation
     Dosage: 133 MG
     Route: 054
  209. MAALOX ANTACID [Suspect]
     Active Substance: ALUMINUM HYDROXIDE\DIMETHICONE\MAGNESIUM HYDROXIDE
     Dosage: 133 MILLIGRAM
  210. MAALOX ANTACID [Suspect]
     Active Substance: ALUMINUM HYDROXIDE\DIMETHICONE\MAGNESIUM HYDROXIDE
     Dosage: 133 MILLILITER
     Route: 054
  211. MAALOX ANTACID [Suspect]
     Active Substance: ALUMINUM HYDROXIDE\DIMETHICONE\MAGNESIUM HYDROXIDE
     Dosage: 133 MILLIGRAM
  212. MAALOX ANTACID [Suspect]
     Active Substance: ALUMINUM HYDROXIDE\DIMETHICONE\MAGNESIUM HYDROXIDE
     Dosage: 133 ML
     Route: 054
  213. SODIUM ASCORBATE [Suspect]
     Active Substance: SODIUM ASCORBATE
     Dosage: DOSE DESCRIPTION : UNK
  214. POLYETHYLENE GLYCOL 4000 [Suspect]
     Active Substance: POLYETHYLENE GLYCOL 4000
     Indication: Constipation
     Dosage: DOSE DESCRIPTION : 17 G, QD
     Route: 048
  215. POLYETHYLENE GLYCOL 4000 [Suspect]
     Active Substance: POLYETHYLENE GLYCOL 4000
     Indication: Iron deficiency
     Dosage: DOSE DESCRIPTION : 3 G, QW
  216. POLYETHYLENE GLYCOL 4000 [Suspect]
     Active Substance: POLYETHYLENE GLYCOL 4000
     Dosage: DOSE DESCRIPTION : 1 DF, Q6H
  217. POLYETHYLENE GLYCOL 4000 [Suspect]
     Active Substance: POLYETHYLENE GLYCOL 4000
     Dosage: DOSE DESCRIPTION : 2.5 MG
     Route: 042
  218. POLYETHYLENE GLYCOL 4000 [Suspect]
     Active Substance: POLYETHYLENE GLYCOL 4000
     Dosage: DOSE DESCRIPTION : UNK, QD
     Route: 048
  219. POLYETHYLENE GLYCOL 4000 [Suspect]
     Active Substance: POLYETHYLENE GLYCOL 4000
     Dosage: DOSE DESCRIPTION : UNK
  220. POLYETHYLENE GLYCOL 4000 [Suspect]
     Active Substance: POLYETHYLENE GLYCOL 4000
     Dosage: DOSE DESCRIPTION : 3 MG
     Route: 048
  221. POLYETHYLENE GLYCOL 4000 [Suspect]
     Active Substance: POLYETHYLENE GLYCOL 4000
     Dosage: DOSE DESCRIPTION : 2.5 ML
     Route: 042
  222. POLYETHYLENE GLYCOL 4000 [Suspect]
     Active Substance: POLYETHYLENE GLYCOL 4000
     Dosage: DOSE DESCRIPTION : 5 MG
     Route: 065

REACTIONS (2)
  - Abdominal distension [Fatal]
  - Ventricular fibrillation [Fatal]
